FAERS Safety Report 24054967 (Version 1)
Quarter: 2024Q3

REPORT INFORMATION
  Report Type: Spontaneous
  Country: GB (occurrence: GB)
  Receive Date: 20240705
  Receipt Date: 20240705
  Transmission Date: 20241017
  Serious: Yes (Other)
  Sender: PERRIGO
  Company Number: GB-PERRIGO-24GB006131

PATIENT
  Sex: Female

DRUGS (1)
  1. ULIPRISTAL ACETATE [Suspect]
     Active Substance: ULIPRISTAL ACETATE
     Indication: Post coital contraception
     Route: 065

REACTIONS (2)
  - Abortion spontaneous [Recovered/Resolved]
  - Pregnancy after post coital contraception [Recovered/Resolved]
